FAERS Safety Report 18539465 (Version 2)
Quarter: 2020Q4

REPORT INFORMATION
  Report Type: Report from Study
  Country: US (occurrence: US)
  Receive Date: 20201124
  Receipt Date: 20201217
  Transmission Date: 20210114
  Serious: Yes (Other)
  Sender: FDA-Public Use
  Company Number: US-BAYER-2020-243718

PATIENT
  Age: 47 Year
  Sex: Female

DRUGS (1)
  1. STIVARGA [Suspect]
     Active Substance: REGORAFENIB
     Indication: COLORECTAL CANCER
     Dosage: 160 MG, BID WITH LOW FAT BREAKFAST AT 7:30 AM 21 DAYS ON/7 DAYS OFF
     Route: 048
     Dates: start: 20201101, end: 20201116

REACTIONS (12)
  - Hyperhidrosis [Recovered/Resolved]
  - Skin ulcer [Recovered/Resolved]
  - Fatigue [Recovered/Resolved]
  - Prescribed overdose [None]
  - Decreased activity [Not Recovered/Not Resolved]
  - Neuropathy peripheral [Not Recovered/Not Resolved]
  - Nausea [Recovered/Resolved]
  - Diarrhoea [Not Recovered/Not Resolved]
  - Rash [Recovered/Resolved]
  - Pruritus [Recovered/Resolved]
  - Gastric pH decreased [Not Recovered/Not Resolved]
  - Stomatitis [Recovered/Resolved]

NARRATIVE: CASE EVENT DATE: 20201101
